FAERS Safety Report 16356777 (Version 1)
Quarter: 2019Q2

REPORT INFORMATION
  Report Type: Spontaneous
  Country: US (occurrence: US)
  Receive Date: 20190418
  Receipt Date: 20190418
  Transmission Date: 20190711
  Serious: No
  Sender: FDA-Public Use
  Company Number: None

PATIENT
  Age: 72 Year
  Sex: Male
  Weight: 84.82 kg

DRUGS (1)
  1. TALTZ [Suspect]
     Active Substance: IXEKIZUMAB
     Indication: PSORIATIC ARTHROPATHY
     Dosage: FREQUENCY: EVERY 4 WEEKS
     Route: 058
     Dates: start: 201804

REACTIONS (1)
  - Cholecystitis infective [None]

NARRATIVE: CASE EVENT DATE: 20190418
